FAERS Safety Report 6425006-2 (Version None)
Quarter: 2009Q4

REPORT INFORMATION
  Report Type: 
  Country: None (occurrence: None)
  Receive Date: 20091030
  Receipt Date: 20091030
  Transmission Date: 20100525
  Serious: Yes (Disabling, Other)
  Sender: FDA-Public Use
  Company Number: None

PATIENT
  Sex: Female
  Weight: 49.8957 kg

DRUGS (5)
  1. CIPROFLOXACIN HCL [Suspect]
     Indication: GASTROINTESTINAL INFECTION
     Dosage: 500 MG PER DAY
     Dates: start: 20090821
  2. CIPROFLOXACIN HCL [Suspect]
     Indication: URINARY TRACT INFECTION
     Dosage: 500 MG PER DAY
     Dates: start: 20090821
  3. LEVAQUIN [Suspect]
     Indication: GASTROINTESTINAL INFECTION
     Dates: start: 20081101
  4. LEVAQUIN [Suspect]
     Indication: URINARY TRACT INFECTION
     Dates: start: 20081101
  5. DOXYCYCLINE [Concomitant]

REACTIONS (10)
  - ARTHRALGIA [None]
  - DIZZINESS [None]
  - GAIT DISTURBANCE [None]
  - HEADACHE [None]
  - MEMORY IMPAIRMENT [None]
  - MOVEMENT DISORDER [None]
  - MYALGIA [None]
  - PALPITATIONS [None]
  - PARAESTHESIA [None]
  - TENDON PAIN [None]
